FAERS Safety Report 20232232 (Version 1)
Quarter: 2021Q4

REPORT INFORMATION
  Report Type: Spontaneous
  Country: US (occurrence: None)
  Receive Date: 20211224
  Receipt Date: 20211224
  Transmission Date: 20220303
  Serious: Yes (Hospitalization)
  Sender: FDA-Public Use
  Company Number: None

PATIENT
  Age: 95 Year
  Sex: Male
  Weight: 93 kg

DRUGS (1)
  1. IVERMECTIN [Suspect]
     Active Substance: IVERMECTIN
     Indication: Product used for unknown indication
     Dosage: FREQUENCY : DAILY;?
     Route: 048
     Dates: start: 20211210, end: 20211214

REACTIONS (6)
  - Cognitive disorder [None]
  - Confusional state [None]
  - Condition aggravated [None]
  - Acute kidney injury [None]
  - Failure to thrive [None]
  - Impaired self-care [None]

NARRATIVE: CASE EVENT DATE: 20211215
